FAERS Safety Report 12599621 (Version 1)
Quarter: 2016Q3

REPORT INFORMATION
  Report Type: Spontaneous
  Country: US (occurrence: US)
  Receive Date: 20160727
  Receipt Date: 20160727
  Transmission Date: 20161109
  Serious: Yes (Other)
  Sender: FDA-Public Use
  Company Number: US-GLAXOSMITHKLINE-US2016106237

PATIENT
  Age: 3 Year
  Sex: Male

DRUGS (1)
  1. AQUAFRESH TRAINING TOOTHPASTE APPLE BANANA TOOTHPASTE [Suspect]
     Active Substance: CITRIC ACID MONOHYDRATE\GLYCERIN\SORBITOL
     Indication: PRODUCT USED FOR UNKNOWN INDICATION
     Dosage: UNK

REACTIONS (3)
  - Accidental overdose [Unknown]
  - Accidental device ingestion by a child [Unknown]
  - Accidental exposure to product by child [Unknown]
